FAERS Safety Report 10143448 (Version 2)
Quarter: 2014Q2

REPORT INFORMATION
  Report Type: Spontaneous
  Country: US (occurrence: US)
  Receive Date: 20140430
  Receipt Date: 20140430
  Transmission Date: 20141212
  Serious: Yes (Life-Threatening, Hospitalization)
  Sender: FDA-Public Use
  Company Number: US-JNJFOC-20140406739

PATIENT
  Age: 59 Year
  Sex: Female
  Weight: 123.83 kg

DRUGS (25)
  1. INVOKANA [Suspect]
     Indication: TYPE 2 DIABETES MELLITUS
     Route: 048
     Dates: start: 20140221
  2. ZYLOPRIM [Concomitant]
  3. XANAX [Concomitant]
  4. ELAVIL [Concomitant]
  5. VITAMIN D3 [Concomitant]
  6. CELEXA [Concomitant]
  7. COLCHICINE [Concomitant]
  8. FLEXERIL [Concomitant]
  9. COLACE [Concomitant]
  10. LASIX [Concomitant]
  11. NEURONTIN [Concomitant]
  12. AMARYL [Concomitant]
  13. CORTAID [Concomitant]
  14. NOVOLOG [Concomitant]
  15. LANTUS [Concomitant]
  16. COZAAR [Concomitant]
  17. MICATIN [Concomitant]
  18. MULTIVITAMINS [Concomitant]
  19. MYCOSTATIN [Concomitant]
  20. SYSTANE BALANCE [Concomitant]
  21. GLYCOLAX [Concomitant]
  22. PHENERGAN [Concomitant]
  23. INDERAL [Concomitant]
  24. ZOCOR [Concomitant]
  25. COUMADIN [Concomitant]

REACTIONS (1)
  - Renal failure acute [Recovered/Resolved]
